FAERS Safety Report 10237222 (Version 1)
Quarter: 2014Q2

REPORT INFORMATION
  Report Type: Spontaneous
  Country: GB (occurrence: GB)
  Receive Date: 20140613
  Receipt Date: 20140613
  Transmission Date: 20141212
  Serious: Yes (Other)
  Sender: FDA-Public Use
  Company Number: GB-ASTRAZENECA-2014SE39448

PATIENT
  Age: 55 Year
  Sex: Female
  Weight: 54.4 kg

DRUGS (9)
  1. BRILIQUE [Suspect]
     Indication: STENT PLACEMENT
     Route: 048
     Dates: start: 20131004
  2. ASPIRIN COATED [Concomitant]
  3. BISOPROLOL [Concomitant]
  4. CODEINE [Concomitant]
  5. DOCUSATE [Concomitant]
  6. LISINOPRIL [Concomitant]
  7. PRUCALOPRIDE [Concomitant]
  8. SENNA [Concomitant]
  9. SIMVASTATIN [Concomitant]

REACTIONS (8)
  - Anorectal discomfort [Not Recovered/Not Resolved]
  - Proctalgia [Not Recovered/Not Resolved]
  - Urethral pain [Not Recovered/Not Resolved]
  - Urethritis noninfective [Not Recovered/Not Resolved]
  - Vulvovaginal burning sensation [Not Recovered/Not Resolved]
  - Vulvovaginal pruritus [Not Recovered/Not Resolved]
  - Vulvovaginal pain [Not Recovered/Not Resolved]
  - Rectal haemorrhage [Not Recovered/Not Resolved]
